FAERS Safety Report 5968381-5 (Version None)
Quarter: 2008Q4

REPORT INFORMATION
  Report Type: 
  Country: None (occurrence: None)
  Receive Date: 20081126
  Receipt Date: 20081121
  Transmission Date: 20090506
  Serious: Yes (Life-Threatening)
  Sender: FDA-Public Use
  Company Number: JP-JNJFOC-20081006190

PATIENT
  Sex: Male
  Weight: 72 kg

DRUGS (12)
  1. RISPERDAL [Suspect]
     Route: 048
  2. RISPERDAL [Suspect]
     Indication: SCHIZOPHRENIA
     Route: 048
  3. RISPERDAL [Suspect]
     Dosage: 4 TO 6 MG PER DAY
     Route: 048
  4. ZYPREXA [Suspect]
     Indication: SCHIZOPHRENIA
     Route: 048
  5. QUETIAPINE FUMARATE [Concomitant]
     Indication: SCHIZOPHRENIA
     Route: 048
  6. HERBESSER R [Concomitant]
     Indication: MYOCARDIAL INFARCTION
     Route: 048
  7. LIPITOR [Concomitant]
     Indication: HYPERLIPIDAEMIA
     Route: 048
  8. ASPIRIN [Concomitant]
     Indication: MYOCARDIAL INFARCTION
     Route: 048
  9. ARTIST [Concomitant]
     Indication: MYOCARDIAL INFARCTION
     Route: 048
  10. ZYLORIC [Concomitant]
     Indication: HYPERLIPIDAEMIA
     Route: 048
  11. URSO 250 [Concomitant]
     Indication: HYPERLIPIDAEMIA
     Route: 048
  12. NITROPEN [Concomitant]
     Indication: MYOCARDIAL INFARCTION
     Route: 060

REACTIONS (6)
  - DEPRESSED LEVEL OF CONSCIOUSNESS [None]
  - OVERDOSE [None]
  - POLYDIPSIA [None]
  - PSYCHIATRIC SYMPTOM [None]
  - RHABDOMYOLYSIS [None]
  - WATER INTOXICATION [None]
